FAERS Safety Report 18898480 (Version 1)
Quarter: 2021Q1

REPORT INFORMATION
  Report Type: Spontaneous
  Country: GB (occurrence: GB)
  Receive Date: 20210216
  Receipt Date: 20210216
  Transmission Date: 20210420
  Serious: No
  Sender: FDA-Public Use
  Company Number: GB-ALKEM LABORATORIES LIMITED-GB-ALKEM-2021-00347

PATIENT
  Age: 41 Year
  Sex: Female

DRUGS (1)
  1. PREGABALIN. [Suspect]
     Active Substance: PREGABALIN
     Indication: ANXIETY
     Dosage: UNK
     Route: 065

REACTIONS (9)
  - Malaise [Unknown]
  - Disturbance in attention [Unknown]
  - Intentional dose omission [Unknown]
  - Abdominal discomfort [Unknown]
  - Night sweats [Unknown]
  - Drug ineffective [Unknown]
  - Abdominal pain upper [Unknown]
  - Insomnia [Unknown]
  - Feeling jittery [Unknown]
